FAERS Safety Report 4745180-3 (Version None)
Quarter: 2005Q3

REPORT INFORMATION
  Report Type: 
  Country: None (occurrence: None)
  Receive Date: 20050815
  Receipt Date: 20050721
  Transmission Date: 20060218
  Serious: Yes (Hospitalization)
  Sender: FDA-Public Use
  Company Number: US-BOEHRINGER INGELHEIM PHARMACEUTICALS, INC.-2005-BP-12400BP

PATIENT
  Sex: Female

DRUGS (14)
  1. CATAPRES-TTS-1 [Suspect]
     Indication: HYPERTENSION
     Route: 061
     Dates: start: 20050430, end: 20050719
  2. HYDRALAZINE [Concomitant]
     Indication: HYPERTENSION
  3. AVANDIA [Concomitant]
     Indication: DIABETES MELLITUS
  4. ASPIRIN [Concomitant]
     Indication: ANTICOAGULANT THERAPY
  5. COREG [Concomitant]
     Indication: ARRHYTHMIA
  6. PLAVIX [Concomitant]
     Indication: ANTICOAGULANT THERAPY
  7. LASIX [Concomitant]
     Indication: DIURETIC THERAPY
  8. KLOR-CON [Concomitant]
     Indication: SUBSTITUTION THERAPY
  9. ZETIA [Concomitant]
     Indication: BLOOD CHOLESTEROL INCREASED
  10. EPOGEN [Concomitant]
     Indication: PROPHYLAXIS
  11. ISOSORBIDE [Concomitant]
  12. FISH OIL [Concomitant]
     Indication: BLOOD CHOLESTEROL INCREASED
  13. CO-ENZYME [Concomitant]
     Indication: CARDIAC DISORDER
  14. CHROMAGEN [Concomitant]

REACTIONS (6)
  - BREAST INFECTION [None]
  - CELLULITIS [None]
  - HYPERKINESIA [None]
  - HYPERSENSITIVITY [None]
  - RASH [None]
  - RASH ERYTHEMATOUS [None]
